FAERS Safety Report 7322187-3 (Version None)
Quarter: 2011Q1

REPORT INFORMATION
  Report Type: 
  Country: None (occurrence: None)
  Receive Date: 20110228
  Receipt Date: 20110215
  Transmission Date: 20110831
  Serious: Yes (Death)
  Sender: FDA-Public Use
  Company Number: CH-MERCK-1005CHE00002

PATIENT
  Age: 41 Year
  Sex: Female

DRUGS (4)
  1. VORICONAZOLE [Suspect]
     Indication: SYSTEMIC MYCOSIS
     Route: 041
  2. CANCIDAS [Suspect]
     Indication: SYSTEMIC MYCOSIS
     Route: 041
  3. POSACONAZOLE [Suspect]
     Indication: SYSTEMIC MYCOSIS
     Route: 048
  4. METHYLPREDNISOLONE [Concomitant]
     Indication: GRAFT VERSUS HOST DISEASE
     Route: 065

REACTIONS (2)
  - DRUG INEFFECTIVE [None]
  - SYSTEMIC MYCOSIS [None]
